FAERS Safety Report 8554968-2 (Version None)
Quarter: 2012Q3

REPORT INFORMATION
  Report Type: 
  Country: None (occurrence: None)
  Receive Date: 20120731
  Receipt Date: 20120726
  Transmission Date: 20120928
  Serious: Yes (Hospitalization)
  Sender: FDA-Public Use
  Company Number: PL-PFIZER INC-2012183239

PATIENT
  Age: 59 Year
  Sex: Female

DRUGS (14)
  1. GLIMEPIRIDE [Concomitant]
     Dosage: UNK
     Dates: start: 20100501
  2. ATORVASTATIN CALCIUM [Suspect]
     Dosage: UNK
     Dates: start: 20050101, end: 20111023
  3. PLACEBO [Suspect]
     Indication: EMBOLISM
     Dosage: UNK
     Route: 048
     Dates: start: 20110516, end: 20110816
  4. AZATHIOPRINE [Suspect]
     Dosage: UNK
     Dates: start: 20110823, end: 20111023
  5. PREDNISONE [Concomitant]
     Dosage: UNK
     Dates: start: 20090101
  6. KALIPOZ [Concomitant]
     Dosage: UNK
     Dates: start: 20110816
  7. INSULIN ACTRAPID [Concomitant]
     Dosage: UNK
     Dates: start: 20110817
  8. BISOPROLOL FUMARATE [Concomitant]
     Dosage: UNK
     Dates: start: 20090101
  9. METFORMIN HCL [Concomitant]
     Dosage: UNK
     Dates: start: 20100501, end: 20110817
  10. CALCIUM [Concomitant]
     Dosage: UNK
     Dates: start: 20110902
  11. ENOXAPARIN SODIUM [Concomitant]
     Dosage: UNK
     Dates: start: 20110816, end: 20120209
  12. ENARENAL [Concomitant]
     Dosage: UNK
     Dates: start: 20110818
  13. APIXABAN [Suspect]
     Indication: EMBOLISM
     Dosage: 5 MG, 1 DAY
     Route: 048
     Dates: start: 20110516, end: 20110816
  14. PREDUCTAL [Concomitant]
     Dosage: UNK
     Dates: start: 20110816

REACTIONS (3)
  - DEEP VEIN THROMBOSIS [None]
  - LIVER INJURY [None]
  - MYOCARDIAL ISCHAEMIA [None]
